FAERS Safety Report 4407385-0 (Version None)
Quarter: 2004Q3

REPORT INFORMATION
  Report Type: 
  Country: None (occurrence: None)
  Receive Date: 20040721
  Receipt Date: 20040713
  Transmission Date: 20050211
  Serious: Yes (Hospitalization)
  Sender: FDA-Public Use
  Company Number: US-JNJFOC-20040703092

PATIENT
  Age: 28 Year
  Sex: Male

DRUGS (5)
  1. RISPERDAL [Suspect]
     Indication: ANXIETY
     Dosage: 3 MG, IN 1 DAY, ORAL
     Route: 048
     Dates: end: 20040618
  2. RISPERDAL [Suspect]
     Indication: DEPRESSION
     Dosage: 3 MG, IN 1 DAY, ORAL
     Route: 048
     Dates: end: 20040618
  3. CITALOPRAM [Suspect]
     Indication: DEPRESSION
     Dosage: SEE IMAGE
     Dates: start: 20040601, end: 20040613
  4. CITALOPRAM [Suspect]
     Indication: DEPRESSION
     Dosage: SEE IMAGE
     Dates: start: 20040614, end: 20040616
  5. CITALOPRAM [Suspect]
     Indication: DEPRESSION
     Dosage: SEE IMAGE
     Dates: start: 20040617, end: 20040618

REACTIONS (12)
  - ABNORMAL BEHAVIOUR [None]
  - BRADYCARDIA [None]
  - DECREASED APPETITE [None]
  - DEPRESSION [None]
  - DISEASE RECURRENCE [None]
  - DRUG INEFFECTIVE [None]
  - EMOTIONAL DISTRESS [None]
  - INSOMNIA [None]
  - MEDICATION ERROR [None]
  - RESTLESSNESS [None]
  - SCHIZOAFFECTIVE DISORDER [None]
  - TREATMENT NONCOMPLIANCE [None]
